FAERS Safety Report 8090015-7 (Version None)
Quarter: 2012Q1

REPORT INFORMATION
  Report Type: 
  Country: None (occurrence: None)
  Receive Date: 20120129
  Receipt Date: 20110930
  Transmission Date: 20120608
  Serious: No
  Sender: FDA-Public Use
  Company Number: US-ABBOTT-11P-163-0860050-00

PATIENT
  Age: 36 Year
  Sex: Male

DRUGS (3)
  1. TREXIMET [Concomitant]
     Indication: MIGRAINE
     Dosage: 85/500MG
  2. HUMIRA [Suspect]
     Indication: PSORIASIS
     Dates: start: 20090601
  3. LYRICA [Concomitant]
     Indication: MIGRAINE

REACTIONS (3)
  - INJECTION SITE PAIN [None]
  - INJECTION SITE HAEMORRHAGE [None]
  - SINUSITIS [None]
